FAERS Safety Report 5139713-5 (Version None)
Quarter: 2006Q4

REPORT INFORMATION
  Report Type: 
  Country: None (occurrence: None)
  Receive Date: 20061030
  Receipt Date: 20061020
  Transmission Date: 20070319
  Serious: Yes (Other)
  Sender: FDA-Public Use
  Company Number: JP-ABBOTT-06P-087-0347684-00

PATIENT
  Age: 80 Year
  Sex: Male

DRUGS (4)
  1. SEVOFLURANE [Suspect]
     Indication: ANAESTHESIA
  2. PROPOFOL [Concomitant]
     Indication: DRUG USE FOR UNKNOWN INDICATION
  3. FENTANYL [Concomitant]
     Indication: DRUG USE FOR UNKNOWN INDICATION
  4. VECURONIUM BROMIDE [Concomitant]
     Indication: DRUG USE FOR UNKNOWN INDICATION

REACTIONS (1)
  - ACUTE MYOCARDIAL INFARCTION [None]
